FAERS Safety Report 21028922 (Version 20)
Quarter: 2022Q4

REPORT INFORMATION
  Report Type: Report from Study
  Country: CA (occurrence: CA)
  Receive Date: 20220630
  Receipt Date: 20221216
  Transmission Date: 20230113
  Serious: Yes (Other)
  Sender: FDA-Public Use
  Company Number: CA-GILEAD-2022-0586479

PATIENT
  Age: 60 Year
  Sex: Female
  Weight: 74 kg

DRUGS (9)
  1. SACITUZUMAB GOVITECAN [Suspect]
     Active Substance: SACITUZUMAB GOVITECAN
     Indication: Triple negative breast cancer
     Dosage: 665 MG, 2ND LINE METASTATIC
     Route: 042
     Dates: start: 20220622
  2. SACITUZUMAB GOVITECAN [Suspect]
     Active Substance: SACITUZUMAB GOVITECAN
     Dosage: 630 MG
     Route: 042
     Dates: start: 20220809
  3. SACITUZUMAB GOVITECAN [Suspect]
     Active Substance: SACITUZUMAB GOVITECAN
     Dosage: 630 MG, D1 AND D8
     Route: 042
     Dates: start: 20220818, end: 20220825
  4. SACITUZUMAB GOVITECAN [Suspect]
     Active Substance: SACITUZUMAB GOVITECAN
     Dosage: 630 MG, CYCLE DAY 1, CYCLE DAY 8
     Route: 042
     Dates: start: 20220921, end: 20220928
  5. SACITUZUMAB GOVITECAN [Suspect]
     Active Substance: SACITUZUMAB GOVITECAN
     Dosage: 630 MG, CYCLE DAY 1
     Route: 042
     Dates: start: 20221019
  6. SACITUZUMAB GOVITECAN [Suspect]
     Active Substance: SACITUZUMAB GOVITECAN
     Dosage: 630 MG
     Route: 042
     Dates: start: 20220622
  7. SACITUZUMAB GOVITECAN [Suspect]
     Active Substance: SACITUZUMAB GOVITECAN
     Dosage: 630 MG
     Route: 042
     Dates: start: 20221116
  8. PACLITAXEL [Concomitant]
     Active Substance: PACLITAXEL
  9. METFORMIN [Concomitant]
     Active Substance: METFORMIN HYDROCHLORIDE
     Dosage: UNK

REACTIONS (39)
  - Haematochezia [Unknown]
  - Neutrophil count decreased [Unknown]
  - Disease progression [Unknown]
  - Diarrhoea [Unknown]
  - Weight decreased [Unknown]
  - Alopecia [Not Recovered/Not Resolved]
  - Full blood count decreased [Not Recovered/Not Resolved]
  - Diarrhoea [Not Recovered/Not Resolved]
  - Fatigue [Not Recovered/Not Resolved]
  - Mouth ulceration [Not Recovered/Not Resolved]
  - Cheilitis [Not Recovered/Not Resolved]
  - Hypertension [Unknown]
  - Weight decreased [Unknown]
  - Diarrhoea [Unknown]
  - Weight decreased [Unknown]
  - Blood test abnormal [Unknown]
  - White blood cell count abnormal [Unknown]
  - Weight decreased [Unknown]
  - Hypoaesthesia [Not Recovered/Not Resolved]
  - Pain in extremity [Recovered/Resolved]
  - Ligament sprain [Not Recovered/Not Resolved]
  - Hypoaesthesia [Unknown]
  - Paraesthesia [Recovered/Resolved]
  - Weight increased [Unknown]
  - Tooth extraction [Recovered/Resolved]
  - Abdominal discomfort [Unknown]
  - Weight fluctuation [Unknown]
  - Weight fluctuation [Unknown]
  - Hypertension [Unknown]
  - Weight increased [Unknown]
  - Inappropriate schedule of product administration [Unknown]
  - Inappropriate schedule of product administration [Unknown]
  - Inappropriate schedule of product administration [Unknown]
  - Inappropriate schedule of product administration [Unknown]
  - Inappropriate schedule of product administration [Recovered/Resolved]
  - Off label use [Unknown]
  - Inappropriate schedule of product administration [Unknown]
  - Weight decreased [Unknown]
  - Hypertension [Unknown]

NARRATIVE: CASE EVENT DATE: 20220101
